FAERS Safety Report 14243569 (Version 5)
Quarter: 2019Q1

REPORT INFORMATION
  Report Type: Spontaneous
  Country: US (occurrence: US)
  Receive Date: 20171201
  Receipt Date: 20190306
  Transmission Date: 20190417
  Serious: Yes (Hospitalization, Other)
  Sender: FDA-Public Use
  Company Number: US-PFIZER INC-2017268805

PATIENT
  Age: 88 Year
  Sex: Female
  Weight: 90.72 kg

DRUGS (21)
  1. VITAMIN D [Concomitant]
     Active Substance: CHOLECALCIFEROL
     Dosage: UNK, DAILY (3 CHEWS DAILY)
     Dates: start: 201703
  2. NEXIUM [Concomitant]
     Active Substance: ESOMEPRAZOLE MAGNESIUM
     Dosage: UNK
     Dates: start: 2016
  3. OXYCODONE HYDROCHLORIDE. [Concomitant]
     Active Substance: OXYCODONE HYDROCHLORIDE
     Dosage: 5 MG, AS NEEDED (5 MG T QD- PRN)
     Dates: start: 20170605
  4. PRESERVISION [Concomitant]
     Active Substance: MINERALS\VITAMINS
     Dosage: UNK, 1X/DAY
     Dates: start: 20160201
  5. IBRANCE [Suspect]
     Active Substance: PALBOCICLIB
     Dosage: 75 MG, 2X/DAY
     Dates: start: 201703
  6. FEMARA [Concomitant]
     Active Substance: LETROZOLE
     Dosage: 2.5 MG, 1X/DAY
     Dates: start: 20170605
  7. OXYCODONE HYDROCHLORIDE. [Concomitant]
     Active Substance: OXYCODONE HYDROCHLORIDE
     Dosage: 5 MG, 2X/DAY
  8. METOPROLOL. [Concomitant]
     Active Substance: METOPROLOL
     Dosage: 75 MG, DAILY
  9. CYMBALTA [Concomitant]
     Active Substance: DULOXETINE HYDROCHLORIDE
     Dosage: 30 MG, DAILY
     Dates: start: 201705
  10. NEXIUM [Concomitant]
     Active Substance: ESOMEPRAZOLE MAGNESIUM
     Dosage: 20 MG, 1X/DAY
     Dates: start: 20170808
  11. LASIX [Concomitant]
     Active Substance: FUROSEMIDE
     Dosage: 40 MG, 2X/DAY
     Dates: start: 201703
  12. K+10 [Concomitant]
     Dosage: 10 MEQ, 1X/DAY
     Dates: start: 20171013
  13. PRESERVISION [Concomitant]
     Active Substance: MINERALS\VITAMINS
     Dosage: UNK, 2X/DAY
  14. IBRANCE [Suspect]
     Active Substance: PALBOCICLIB
     Indication: BREAST CANCER METASTATIC
     Dosage: 100 MG, CYCLIC (1 PO DAILY X 21 DAYS OF EACH 28 DAY CYCLE)
     Route: 048
  15. IBRANCE [Suspect]
     Active Substance: PALBOCICLIB
     Dosage: 75 MG, CYCLIC (ONCE DAILY WITH FOOD 21 DAYS ON 7 DAYS OFF)
     Route: 048
  16. CYMBALTA [Concomitant]
     Active Substance: DULOXETINE HYDROCHLORIDE
     Dosage: 30 MG, 1X/DAY
     Dates: start: 20171106
  17. IBRANCE [Suspect]
     Active Substance: PALBOCICLIB
     Dosage: 75 MG, CYCLIC (ONCE A DAY FOR 21 DAYS AND THEN OFF FOR A WEEK)
  18. IBRANCE [Suspect]
     Active Substance: PALBOCICLIB
     Dosage: 75 MG, CYCLIC (75 MG, CYCLIC (75MG X1/1 DAILY X21 DAYS))
     Dates: start: 20170808
  19. VITAMIN D [Concomitant]
     Active Substance: CHOLECALCIFEROL
     Dosage: UNK UNK, DAILY (3 CHEWS DAILY)
     Dates: start: 20170808
  20. LASIX [Concomitant]
     Active Substance: FUROSEMIDE
     Dosage: 40 MG, 2X/DAY
     Dates: start: 20170605
  21. SPIRONOLACTONE. [Concomitant]
     Active Substance: SPIRONOLACTONE
     Dosage: 25 MG, 1X/DAY
     Dates: start: 20171106

REACTIONS (9)
  - Atrial fibrillation [Recovering/Resolving]
  - Wheezing [Unknown]
  - Malaise [Unknown]
  - Dyspnoea [Unknown]
  - Delusion [Unknown]
  - Hip fracture [Recovered/Resolved]
  - Pain in extremity [Not Recovered/Not Resolved]
  - Full blood count decreased [Unknown]
  - Pneumonia [Recovering/Resolving]

NARRATIVE: CASE EVENT DATE: 20170908
